FAERS Safety Report 9324729 (Version 2)
Quarter: 2013Q2

REPORT INFORMATION
  Report Type: Spontaneous
  Country: US (occurrence: None)
  Receive Date: 20130529
  Receipt Date: 20130619
  Transmission Date: 20140414
  Serious: Yes (Hospitalization, Other)
  Sender: FDA-Public Use
  Company Number: JPI-P-032109

PATIENT
  Age: 63 Year
  Sex: Female

DRUGS (1)
  1. XYREM (500 MILLIGRAM/MILLILITERS, SOLUTION) (SODIUM OXYBATE) [Suspect]
     Indication: SLEEP DISORDER
     Dosage: 7 GM (3.5 GM, 2 IN 1 D), ORAL
     Dates: start: 20040805

REACTIONS (2)
  - Renal disorder [None]
  - Cytogenetic abnormality [None]
